FAERS Safety Report 23143620 (Version 1)
Quarter: 2023Q4

REPORT INFORMATION
  Report Type: Spontaneous
  Country: HR (occurrence: HR)
  Receive Date: 20231103
  Receipt Date: 20231103
  Transmission Date: 20240110
  Serious: Yes (Hospitalization, Other)
  Sender: FDA-Public Use
  Company Number: HR-VELOXIS PHARMACEUTICALS, INC.-2023-VEL-00681

PATIENT
  Age: 8 Year
  Sex: Male

DRUGS (3)
  1. TACROLIMUS [Suspect]
     Active Substance: TACROLIMUS
     Indication: Lung transplant
     Dosage: UNK
  2. CORTICOSTEROID NOS [Suspect]
     Active Substance: CORTICOSTEROID NOS
     Indication: Lung transplant
     Dosage: UNK
  3. ALEMTUZUMAB [Suspect]
     Active Substance: ALEMTUZUMAB
     Indication: Lung transplant
     Dosage: UNK

REACTIONS (5)
  - Oesophageal stenosis [Unknown]
  - Complications of transplanted lung [Recovered/Resolved]
  - Chronic kidney disease [Unknown]
  - Product use issue [Unknown]
  - Off label use [Unknown]
